FAERS Safety Report 14439533 (Version 4)
Quarter: 2021Q4

REPORT INFORMATION
  Report Type: Spontaneous
  Country: GR (occurrence: GR)
  Receive Date: 20180125
  Receipt Date: 20211001
  Transmission Date: 20220303
  Serious: Yes (Other)
  Sender: FDA-Public Use
  Company Number: None

PATIENT
  Age: 62 Year
  Sex: Female

DRUGS (26)
  1. CAPECITABINE [Suspect]
     Active Substance: CAPECITABINE
     Indication: Product used for unknown indication
     Dosage: UNK, CYCLE, COMBINATION WITH LAPATINIB; CYCLICAL
     Route: 065
     Dates: start: 2009
  2. CAPECITABINE [Suspect]
     Active Substance: CAPECITABINE
     Dosage: UNK, COMBINATION WITH TRASTUZUMAB; CYCLICAL
     Route: 065
     Dates: start: 2009
  3. FULVESTRANT [Suspect]
     Active Substance: FULVESTRANT
     Indication: Breast cancer metastatic
     Dosage: UNK
     Route: 065
     Dates: start: 2009
  4. ADO-TRASTUZUMAB EMTANSINE [Suspect]
     Active Substance: ADO-TRASTUZUMAB EMTANSINE
     Indication: Breast cancer metastatic
     Dosage: UNK
     Route: 065
     Dates: start: 2009
  5. VINORELBINE [Suspect]
     Active Substance: VINORELBINE TARTRATE
     Indication: Breast cancer metastatic
     Dosage: UNK
     Route: 065
     Dates: start: 2009
  6. DOCETAXEL [Suspect]
     Active Substance: DOCETAXEL
     Indication: Breast cancer metastatic
     Dosage: UNK
     Route: 065
     Dates: start: 2009
  7. DOXORUBICIN HYDROCHLORIDE [Suspect]
     Active Substance: DOXORUBICIN HYDROCHLORIDE
     Indication: Breast cancer metastatic
     Dosage: UNK
     Route: 065
     Dates: start: 2009
  8. GEMCITABINE [Suspect]
     Active Substance: GEMCITABINE
     Indication: Breast cancer metastatic
     Dosage: UNK
     Route: 065
     Dates: start: 2009
  9. TRASTUZUMAB [Suspect]
     Active Substance: TRASTUZUMAB
     Indication: Breast cancer metastatic
     Dosage: UNK, CYCLE, COMBINATION WITH CAPECITABINE; CYCLICAL
     Route: 065
     Dates: start: 2009
  10. TRASTUZUMAB [Suspect]
     Active Substance: TRASTUZUMAB
     Dosage: UNK
     Route: 065
     Dates: start: 2009
  11. TRASTUZUMAB [Suspect]
     Active Substance: TRASTUZUMAB
     Dosage: UNK, CYCLE, COMBINATION WITH LIPOSOMAL DOXORUBICIN HYDROCHLORIDE
     Route: 065
     Dates: start: 2009
  12. TRASTUZUMAB [Suspect]
     Active Substance: TRASTUZUMAB
     Dosage: UNK, COMBINATION WITH EXEMESTANE AND EVEROLIMUS; CYCLICAL
     Route: 065
     Dates: start: 2009
  13. TRASTUZUMAB [Suspect]
     Active Substance: TRASTUZUMAB
     Dosage: UNK, COMBINATION WITH VINORELBINE
     Route: 065
     Dates: start: 2009
  14. TRASTUZUMAB [Suspect]
     Active Substance: TRASTUZUMAB
     Dosage: UNK, COMBINATION WITH FULVESTRANT; CYCLICAL
     Route: 065
     Dates: start: 2009
  15. TRASTUZUMAB [Suspect]
     Active Substance: TRASTUZUMAB
     Dosage: UNK, COMBINATION WITH TAMOXIFEN; CYCLICAL
     Route: 065
     Dates: start: 2009
  16. TRASTUZUMAB [Suspect]
     Active Substance: TRASTUZUMAB
     Dosage: UNK, COMBINATION WITH ERIBULIN; CYCLICAL
     Route: 065
     Dates: start: 2009
  17. TRASTUZUMAB [Suspect]
     Active Substance: TRASTUZUMAB
     Dosage: UNK, COMBINATION WITH GEMCITABINE AND CARBOPLATIN
     Route: 065
     Dates: start: 2009
  18. CARBOPLATIN [Suspect]
     Active Substance: CARBOPLATIN
     Indication: Breast cancer metastatic
     Dosage: UNK
     Route: 065
     Dates: start: 2009
  19. TAMOXIFEN CITRATE [Suspect]
     Active Substance: TAMOXIFEN CITRATE
     Indication: Breast cancer metastatic
     Dosage: UNK
     Route: 065
     Dates: start: 2009
  20. EXEMESTANE [Suspect]
     Active Substance: EXEMESTANE
     Indication: Breast cancer metastatic
     Dosage: UNK
     Route: 065
     Dates: start: 2009
  21. ERIBULIN [Suspect]
     Active Substance: ERIBULIN
     Indication: Breast cancer metastatic
     Dosage: UNK
     Route: 065
     Dates: start: 2009
  22. EVEROLIMUS [Suspect]
     Active Substance: EVEROLIMUS
     Indication: Breast cancer metastatic
     Dosage: UNK
     Route: 065
     Dates: start: 2009
  23. LAPATINIB DITOSYLATE [Suspect]
     Active Substance: LAPATINIB DITOSYLATE
     Indication: Breast cancer metastatic
     Dosage: UNK
     Route: 065
     Dates: start: 2009
  24. TAMOXIFEN [Suspect]
     Active Substance: TAMOXIFEN
     Indication: Breast cancer metastatic
     Dosage: UNK
     Route: 065
  25. TYKERB [Suspect]
     Active Substance: LAPATINIB DITOSYLATE
     Indication: Breast cancer metastatic
     Dosage: UNK
     Route: 065
     Dates: start: 2009
  26. DOXORUBICIN [Suspect]
     Active Substance: DOXORUBICIN
     Indication: Breast cancer metastatic
     Dosage: UNK
     Route: 065

REACTIONS (1)
  - Neoplasm progression [Unknown]

NARRATIVE: CASE EVENT DATE: 20100101
